FAERS Safety Report 9424016 (Version 1)
Quarter: 2013Q3

REPORT INFORMATION
  Report Type: Report from Study
  Country: IN (occurrence: IN)
  Receive Date: 20130729
  Receipt Date: 20130729
  Transmission Date: 20140515
  Serious: Yes (Other)
  Sender: FDA-Public Use
  Company Number: IN-ROCHE-1252659

PATIENT
  Age: 3 Month
  Sex: Male

DRUGS (2)
  1. BEVACIZUMAB [Suspect]
     Indication: RETINOPATHY OF PREMATURITY
     Dosage: 0.63 MG IN 0.025 ML (HALF AN ADULT DOSE); ROUTE INTRACAMERAL
     Route: 050
  2. BEVACIZUMAB [Suspect]
     Indication: OFF LABEL USE
     Route: 050

REACTIONS (5)
  - Retinal pigment epithelial tear [Unknown]
  - Choroidal rupture [Unknown]
  - Aspartate aminotransferase increased [Recovered/Resolved]
  - Alanine aminotransferase increased [Recovered/Resolved]
  - Blood alkaline phosphatase increased [Recovered/Resolved]
